FAERS Safety Report 6862456-4 (Version None)
Quarter: 2010Q3

REPORT INFORMATION
  Report Type: 
  Country: None (occurrence: None)
  Receive Date: 20100721
  Receipt Date: 20100714
  Transmission Date: 20110219
  Serious: Yes (Death)
  Sender: FDA-Public Use
  Company Number: DE-MPIJNJ-2010-03555

PATIENT

DRUGS (4)
  1. VELCADE [Suspect]
     Indication: MULTIPLE MYELOMA
     Dosage: 1.0 MG/M2, UNK
     Route: 065
     Dates: start: 20090303, end: 20090814
  2. DEXAMETHASONE ACETATE [Concomitant]
  3. PREDNISONE [Concomitant]
  4. PREDNISOLONE [Concomitant]
     Indication: MULTIPLE MYELOMA

REACTIONS (1)
  - DEATH [None]
